FAERS Safety Report 5286524-6 (Version None)
Quarter: 2007Q2

REPORT INFORMATION
  Report Type: 
  Country: None (occurrence: None)
  Receive Date: 20070404
  Receipt Date: 20070323
  Transmission Date: 20071010
  Serious: Yes (Life-Threatening, Hospitalization)
  Sender: FDA-Public Use
  Company Number: FR-ROCHE-483678

PATIENT
  Age: 68 Year
  Sex: Female
  Weight: 59 kg

DRUGS (3)
  1. PEGASYS [Suspect]
     Route: 058
     Dates: start: 20070122, end: 20070129
  2. COPEGUS [Suspect]
     Route: 065
     Dates: start: 20050611
  3. COPEGUS [Suspect]
     Route: 065
     Dates: end: 20070202

REACTIONS (1)
  - ACUTE RESPIRATORY DISTRESS SYNDROME [None]
